FAERS Safety Report 7562866-6 (Version None)
Quarter: 2011Q2

REPORT INFORMATION
  Report Type: 
  Country: None (occurrence: None)
  Receive Date: 20110622
  Receipt Date: 20110620
  Transmission Date: 20111010
  Serious: Yes (Death, Other)
  Sender: FDA-Public Use
  Company Number: CN-GENZYME-THYM-1002506

PATIENT
  Age: 33 Year
  Sex: Male

DRUGS (4)
  1. THYMOGLOBULIN [Suspect]
     Indication: BONE MARROW CONDITIONING REGIMEN
     Route: 042
  2. BUSULFAN [Suspect]
     Indication: BONE MARROW CONDITIONING REGIMEN
     Route: 065
  3. CYCLOSPORINE [Concomitant]
     Indication: PROPHYLAXIS AGAINST GRAFT VERSUS HOST DISEASE
     Route: 065
  4. CYCLOPHOSPHAMIDE [Concomitant]
     Indication: BONE MARROW CONDITIONING REGIMEN
     Route: 065

REACTIONS (13)
  - GRAFT VERSUS HOST DISEASE [None]
  - HERPES VIRUS INFECTION [None]
  - THROMBOCYTOPENIA [None]
  - PYREXIA [None]
  - RESPIRATORY TRACT INFECTION [None]
  - ENGRAFT FAILURE [None]
  - DIARRHOEA [None]
  - STOMATITIS [None]
  - HERPES ZOSTER [None]
  - PNEUMONIA [None]
  - HAEMORRHAGE INTRACRANIAL [None]
  - PANCYTOPENIA [None]
  - KAPOSI'S SARCOMA [None]
